FAERS Safety Report 7197129-4 (Version None)
Quarter: 2010Q4

REPORT INFORMATION
  Report Type: 
  Country: None (occurrence: None)
  Receive Date: 20101224
  Receipt Date: 20101214
  Transmission Date: 20110411
  Serious: Yes (Hospitalization, Other)
  Sender: FDA-Public Use
  Company Number: PHHY2010RU81837

PATIENT
  Age: 56 Year
  Sex: Male

DRUGS (5)
  1. MYFORTIC [Suspect]
     Dosage: UNK
     Dates: start: 20060101
  2. MYFORTIC [Suspect]
     Dosage: 1440 MG
     Dates: start: 20080101
  3. CYCLOSPORINE [Concomitant]
     Dosage: 150 MG, DAILY
  4. METYPRED [Concomitant]
  5. FELODIPINE [Concomitant]
     Dosage: UNK

REACTIONS (4)
  - HYDROCELE [None]
  - ORCHITIS [None]
  - SURGERY [None]
  - TESTICULAR ATROPHY [None]
